FAERS Safety Report 4998361-8 (Version None)
Quarter: 2006Q2

REPORT INFORMATION
  Report Type: 
  Country: None (occurrence: None)
  Receive Date: 20060508
  Receipt Date: 20060421
  Transmission Date: 20061013
  Serious: Yes (Hospitalization)
  Sender: FDA-Public Use
  Company Number: 2006057171

PATIENT
  Age: 51 Year
  Sex: Male

DRUGS (1)
  1. LIPITOR [Suspect]
     Indication: HYPERLIPIDAEMIA
     Dosage: UNKNOWN, ORAL
     Route: 048
     Dates: start: 20050101, end: 20050701

REACTIONS (6)
  - ABDOMINAL WALL MASS [None]
  - HAEMATOMA [None]
  - HYPERTROPHY [None]
  - INFLAMMATION [None]
  - PAIN [None]
  - POST PROCEDURAL COMPLICATION [None]
